FAERS Safety Report 10881562 (Version 1)
Quarter: 2015Q1

REPORT INFORMATION
  Report Type: Spontaneous
  Country: US (occurrence: US)
  Receive Date: 20150303
  Receipt Date: 20150303
  Transmission Date: 20150721
  Serious: Yes (Hospitalization, Other)
  Sender: FDA-Public Use
  Company Number: US-SHIRE-US201501527

PATIENT
  Sex: Female
  Weight: 75.74 kg

DRUGS (3)
  1. COLAZAL [Concomitant]
     Active Substance: BALSALAZIDE DISODIUM
     Indication: COLITIS ULCERATIVE
     Dosage: 2250 MG (THREE 750 MG CAPSULES), 3X/DAY:TID
     Route: 048
     Dates: start: 2005
  2. PENTASA [Suspect]
     Active Substance: MESALAMINE
     Indication: COLITIS ULCERATIVE
     Dosage: 1500 MG (THRREE 500 MG CAPSULES), 3X/DAY:TID
     Route: 048
     Dates: start: 2005, end: 201501
  3. PENTASA [Suspect]
     Active Substance: MESALAMINE
     Dosage: 1500 MG (THREE 500 MG CAPSULES), 3X/DAY:TID
     Route: 048
     Dates: start: 201502

REACTIONS (6)
  - Dyspnoea [Recovered/Resolved]
  - Chronic obstructive pulmonary disease [Not Recovered/Not Resolved]
  - Drug dose omission [Recovered/Resolved]
  - Prescribed overdose [Unknown]
  - Colitis [Unknown]
  - Haematochezia [Unknown]

NARRATIVE: CASE EVENT DATE: 2005
